FAERS Safety Report 22051765 (Version 1)
Quarter: 2023Q1

REPORT INFORMATION
  Report Type: Other
  Country: US (occurrence: None)
  Receive Date: 20230302
  Receipt Date: 20230302
  Transmission Date: 20230417
  Serious: Yes (Other)
  Sender: FDA-Public Use
  Company Number: US-ROCHE-3293391

PATIENT
  Age: 58 Year
  Sex: Female
  Weight: 53.572 kg

DRUGS (8)
  1. OCREVUS [Suspect]
     Active Substance: OCRELIZUMAB
     Indication: Relapsing-remitting multiple sclerosis
     Dosage: 300MG/10ML
     Route: 042
     Dates: start: 2021
  2. OCREVUS [Suspect]
     Active Substance: OCRELIZUMAB
     Dosage: INFUSE 300MG IV ON DAY 1 + DAY 15, INFUSE 600MG INTRAVENOUSLY EVERY 6 MONTH(S)?DOT: 2022-08-09, 2022
     Route: 042
  3. LEVOTHYROXINE [Concomitant]
     Active Substance: LEVOTHYROXINE
  4. MYRBETRIQ [Concomitant]
     Active Substance: MIRABEGRON
  5. VITAMIN D2 [Concomitant]
     Active Substance: ERGOCALCIFEROL
  6. GABAPENTIN [Concomitant]
     Active Substance: GABAPENTIN
  7. NUEDEXTA [Concomitant]
     Active Substance: DEXTROMETHORPHAN HYDROBROMIDE\QUINIDINE SULFATE
  8. DULOXETINE [Concomitant]
     Active Substance: DULOXETINE

REACTIONS (2)
  - Urinary tract infection [Unknown]
  - Infusion related reaction [Recovered/Resolved]

NARRATIVE: CASE EVENT DATE: 20220809
